FAERS Safety Report 6817063-6 (Version None)
Quarter: 2010Q2

REPORT INFORMATION
  Report Type: 
  Country: None (occurrence: None)
  Receive Date: 20100630
  Receipt Date: 20100617
  Transmission Date: 20101027
  Serious: Yes (Other)
  Sender: FDA-Public Use
  Company Number: 2010SP034094

PATIENT
  Sex: Female

DRUGS (6)
  1. INTRON A [Suspect]
     Indication: DRUG USE FOR UNKNOWN INDICATION
     Dosage: 16.8 MIU SC,  33.6 MIU;QD;IV
     Route: 058
  2. METOCLOPRAMIDE [Suspect]
     Indication: DRUG USE FOR UNKNOWN INDICATION
     Dosage: 10 MG Q6H
  3. PROCHLORPERAZINE MALEATE [Suspect]
     Indication: DRUG USE FOR UNKNOWN INDICATION
  4. AVAPRO [Concomitant]
  5. METFORMIN HCL [Concomitant]
  6. SIMVASTATIN [Concomitant]

REACTIONS (14)
  - AKATHISIA [None]
  - ASTHENIA [None]
  - BLOOD ALKALINE PHOSPHATASE INCREASED [None]
  - CONFUSIONAL STATE [None]
  - EXTRAPYRAMIDAL DISORDER [None]
  - GAIT DISTURBANCE [None]
  - HEPATIC ENZYME INCREASED [None]
  - MOVEMENT DISORDER [None]
  - PARKINSONISM [None]
  - RASH MACULO-PAPULAR [None]
  - RESTLESSNESS [None]
  - SKIN PLAQUE [None]
  - SOMNOLENCE [None]
  - TREMOR [None]
